FAERS Safety Report 8453894-7 (Version None)
Quarter: 2012Q2

REPORT INFORMATION
  Report Type: 
  Country: None (occurrence: None)
  Receive Date: 20120323
  Receipt Date: 20111206
  Transmission Date: 20120825
  Serious: Yes (Other)
  Sender: FDA-Public Use
  Company Number: 163-21880-11110390

PATIENT
  Age: 73 Year
  Sex: Female
  Weight: 56.246 kg

DRUGS (3)
  1. REVLIMID [Suspect]
     Indication: MYELODYSPLASTIC SYNDROME
     Dosage: 10 MG, 1 IN 1 D, PO; 5 MG, DAILY FOR 21 DAYS, PO;  5 MG, DAILY FOR 21 DAYS, PO
     Route: 048
     Dates: start: 20111004
  2. REVLIMID [Suspect]
     Indication: MYELODYSPLASTIC SYNDROME
     Dosage: 10 MG, 1 IN 1 D, PO; 5 MG, DAILY FOR 21 DAYS, PO;  5 MG, DAILY FOR 21 DAYS, PO
     Route: 048
     Dates: start: 20110601
  3. REVLIMID [Suspect]
     Indication: MYELODYSPLASTIC SYNDROME
     Dosage: 10 MG, 1 IN 1 D, PO; 5 MG, DAILY FOR 21 DAYS, PO;  5 MG, DAILY FOR 21 DAYS, PO
     Route: 048
     Dates: start: 20090401

REACTIONS (2)
  - GASTROENTERITIS VIRAL [None]
  - HAEMOGLOBIN DECREASED [None]
